FAERS Safety Report 8890144 (Version 2)
Quarter: 2012Q4

REPORT INFORMATION
  Report Type: 
  Country: US (occurrence: US)
  Receive Date: 20121107
  Receipt Date: 20121204
  Transmission Date: 20130627
  Serious: Yes (Other)
  Sender: FDA-Public Use
  Company Number: US-PFIZER INC-2012277059

PATIENT
  Age: 54 Year
  Sex: Female
  Weight: 65.76 kg

DRUGS (2)
  1. LYRICA [Suspect]
     Indication: LEG PAIN
     Dosage: 50 mg, 3x/day
     Route: 048
     Dates: start: 201206, end: 201210
  2. LYRICA [Suspect]
     Indication: NEUROPATHY
     Dosage: 50 mg, 3x/day
     Route: 048

REACTIONS (4)
  - Mobility decreased [Unknown]
  - Pain in extremity [Not Recovered/Not Resolved]
  - Back pain [Not Recovered/Not Resolved]
  - Withdrawal syndrome [Unknown]
